FAERS Safety Report 8032565-5 (Version None)
Quarter: 2011Q4

REPORT INFORMATION
  Report Type: 
  Country: None (occurrence: None)
  Receive Date: 20111223
  Receipt Date: 20111215
  Transmission Date: 20120403
  Serious: Yes (Hospitalization)
  Sender: FDA-Public Use
  Company Number: 2011SP012082

PATIENT
  Age: 30 Year
  Sex: Female
  Weight: 63.5036 kg

DRUGS (5)
  1. PROVENTIL [Concomitant]
  2. LYRICA [Concomitant]
  3. NUVARING [Suspect]
     Indication: CONTRACEPTION
     Dates: start: 20050701, end: 20100301
  4. MIDRIN [Concomitant]
  5. PERCOCET [Concomitant]

REACTIONS (6)
  - PNEUMONIA [None]
  - AFFECTIVE DISORDER [None]
  - ROAD TRAFFIC ACCIDENT [None]
  - DEEP VEIN THROMBOSIS [None]
  - FACE INJURY [None]
  - HEAD INJURY [None]
